FAERS Safety Report 7961639-X (Version None)
Quarter: 2011Q4

REPORT INFORMATION
  Report Type: 
  Country: None (occurrence: None)
  Receive Date: 20111207
  Receipt Date: 20111128
  Transmission Date: 20120403
  Serious: Yes (Death, Life-Threatening, Hospitalization, Other)
  Sender: FDA-Public Use
  Company Number: DE-CELGENEUS-062-50794-11051474

PATIENT
  Age: 50 Year
  Sex: Male
  Weight: 117 kg

DRUGS (4)
  1. VIDAZA [Suspect]
     Dosage: 240 MILLIGRAM
     Route: 065
     Dates: start: 20110423, end: 20110427
  2. ETOPOSIDE [Suspect]
     Dosage: 240 MILLIGRAM
     Route: 065
     Dates: start: 20110420, end: 20110422
  3. HAM [Concomitant]
     Route: 065
     Dates: start: 20110512, end: 20110514
  4. IDARUBICIN HCL [Suspect]
     Dosage: 28 MILLIGRAM
     Route: 065
     Dates: start: 20110420, end: 20110424

REACTIONS (4)
  - THROMBOSIS [None]
  - PANCYTOPENIA [None]
  - LUNG INFECTION [None]
  - ENTERITIS INFECTIOUS [None]
